FAERS Safety Report 15421941 (Version 1)
Quarter: 2018Q3

REPORT INFORMATION
  Report Type: Spontaneous
  Country: US (occurrence: US)
  Receive Date: 20180924
  Receipt Date: 20180924
  Transmission Date: 20181010
  Serious: No
  Sender: FDA-Public Use
  Company Number: US-ALLERGAN-1840304US

PATIENT
  Sex: Female
  Weight: 43.99 kg

DRUGS (9)
  1. ATIVAN [Concomitant]
     Active Substance: LORAZEPAM
     Indication: ANXIETY
  2. LINZESS [Suspect]
     Active Substance: LINACLOTIDE
     Indication: DIVERTICULITIS
     Dosage: 362 ?G, QD
     Route: 065
  3. TRIAMTERENE AND HYDROCHLOROTHIAZIDE [Suspect]
     Active Substance: HYDROCHLOROTHIAZIDE\TRIAMTERENE
     Indication: HYPERTENSION
     Dosage: UNK
     Route: 065
     Dates: start: 201808, end: 201808
  4. CHLORTHALIDONE. [Suspect]
     Active Substance: CHLORTHALIDONE
     Indication: HYPERTENSION
     Dosage: 25 MG, UNK
     Route: 065
     Dates: start: 20180814
  5. RESTORIL [Concomitant]
     Active Substance: TEMAZEPAM
     Indication: SLEEP DISORDER
  6. LINZESS [Suspect]
     Active Substance: LINACLOTIDE
     Indication: IRRITABLE BOWEL SYNDROME
     Dosage: 145 ?G, QD
     Route: 065
     Dates: start: 2013
  7. LINZESS [Suspect]
     Active Substance: LINACLOTIDE
     Indication: DOLICHOCOLON
  8. TRIAMTERENE AND HYDROCHLOROTHIAZIDE [Suspect]
     Active Substance: HYDROCHLOROTHIAZIDE\TRIAMTERENE
     Indication: JOINT SWELLING
  9. CHLORTHALIDONE. [Suspect]
     Active Substance: CHLORTHALIDONE
     Indication: JOINT SWELLING

REACTIONS (8)
  - Hypertension [Not Recovered/Not Resolved]
  - Drug ineffective for unapproved indication [Unknown]
  - Incorrect dose administered [Unknown]
  - Stress [Not Recovered/Not Resolved]
  - Abdominal pain [Recovered/Resolved]
  - Joint swelling [Not Recovered/Not Resolved]
  - Diarrhoea [Recovered/Resolved]
  - Off label use [Unknown]

NARRATIVE: CASE EVENT DATE: 2018
